FAERS Safety Report 21441222 (Version 1)
Quarter: 2022Q4

REPORT INFORMATION
  Report Type: Spontaneous
  Country: US (occurrence: US)
  Receive Date: 20221011
  Receipt Date: 20221011
  Transmission Date: 20230113
  Serious: Yes (Death, Hospitalization)
  Sender: FDA-Public Use
  Company Number: US-PFIZER INC-PV202200071321

PATIENT
  Age: 67 Year
  Sex: Female
  Weight: 63.492 kg

DRUGS (1)
  1. IBRANCE [Suspect]
     Active Substance: PALBOCICLIB
     Dosage: UNK

REACTIONS (2)
  - Asphyxia [Fatal]
  - Cough [Fatal]

NARRATIVE: CASE EVENT DATE: 20220820
